FAERS Safety Report 8105415-6 (Version None)
Quarter: 2012Q1

REPORT INFORMATION
  Report Type: 
  Country: None (occurrence: None)
  Receive Date: 20120201
  Receipt Date: 20120126
  Transmission Date: 20120608
  Serious: Yes (Other)
  Sender: FDA-Public Use
  Company Number: US-BAYER-2012-009291

PATIENT
  Age: 13 Year
  Sex: Female
  Weight: 59 kg

DRUGS (1)
  1. MIDOL MENSTRUAL COMPLETE CAPLETS [Suspect]
     Indication: SELF INJURIOUS BEHAVIOUR
     Dosage: 4 DF, ONCE
     Route: 048
     Dates: start: 20120126, end: 20120126

REACTIONS (2)
  - TREMOR [None]
  - INTENTIONAL DRUG MISUSE [None]
